FAERS Safety Report 6693709-0 (Version None)
Quarter: 2010Q2

REPORT INFORMATION
  Report Type: 
  Country: None (occurrence: None)
  Receive Date: 20100420
  Receipt Date: 20100409
  Transmission Date: 20101027
  Serious: No
  Sender: FDA-Public Use
  Company Number: 009424

PATIENT
  Age: 73 Year
  Sex: Female

DRUGS (2)
  1. PLETAL [Suspect]
     Indication: PERIPHERAL ARTERIAL OCCLUSIVE DISEASE
  2. CONTRAST MEDIA [Suspect]
     Indication: ANGIOGRAM

REACTIONS (1)
  - PANCREATITIS [None]
